FAERS Safety Report 8413412-6 (Version None)
Quarter: 2012Q2

REPORT INFORMATION
  Report Type: 
  Country: None (occurrence: None)
  Receive Date: 20120605
  Receipt Date: 20120530
  Transmission Date: 20120825
  Serious: Yes (Hospitalization)
  Sender: FDA-Public Use
  Company Number: JP-PFIZER INC-2012128289

PATIENT
  Age: 60 Year
  Sex: Male

DRUGS (3)
  1. LENDORMIN [Concomitant]
     Dosage: UNK
     Dates: start: 20120527, end: 20120527
  2. SUTENT [Suspect]
     Indication: RENAL CELL CARCINOMA
     Dosage: 25 MG/DAY
     Route: 048
     Dates: start: 20101210, end: 20120526
  3. SUTENT [Suspect]
     Dosage: UNK
     Dates: start: 20120527, end: 20120527

REACTIONS (1)
  - SUICIDE ATTEMPT [None]
